FAERS Safety Report 6444021-6 (Version None)
Quarter: 2009Q4

REPORT INFORMATION
  Report Type: 
  Country: None (occurrence: None)
  Receive Date: 20091116
  Receipt Date: 20091116
  Transmission Date: 20100525
  Serious: Yes (Hospitalization)
  Sender: FDA-Public Use
  Company Number: None

PATIENT
  Sex: Female
  Weight: 66 kg

DRUGS (2)
  1. TARCEVA [Suspect]
     Indication: LUNG NEOPLASM MALIGNANT
     Dosage: 150MG, DAILY, PO
     Route: 048
  2. CP-751841 [Suspect]
     Indication: LUNG NEOPLASM MALIGNANT
     Dosage: Q3 WEEKS, IV
     Route: 042
     Dates: start: 20090305

REACTIONS (3)
  - GASTRIC ULCER [None]
  - HAEMATOCHEZIA [None]
  - SYNCOPE [None]
